FAERS Safety Report 7393883-7 (Version None)
Quarter: 2011Q1

REPORT INFORMATION
  Report Type: 
  Country: None (occurrence: None)
  Receive Date: 20110330
  Receipt Date: 20110330
  Transmission Date: 20110831
  Serious: Yes (Other)
  Sender: FDA-Public Use
  Company Number: None

PATIENT
  Age: 69 Year
  Sex: Male
  Weight: 71.4 kg

DRUGS (2)
  1. NPLATE [Suspect]
     Indication: IDIOPATHIC THROMBOCYTOPENIC PURPURA
     Dosage: 65MCG WEEKLY SQ  RECD. 2 DOSES 1 WEEK APAR : 130MCG WEEKLY SQ
     Route: 058
     Dates: start: 20110316, end: 20110316
  2. NPLATE [Suspect]
     Indication: IDIOPATHIC THROMBOCYTOPENIC PURPURA
     Dosage: 65MCG WEEKLY SQ  RECD. 2 DOSES 1 WEEK APAR : 130MCG WEEKLY SQ
     Route: 058
     Dates: start: 20110323, end: 20110323

REACTIONS (7)
  - DEPRESSED LEVEL OF CONSCIOUSNESS [None]
  - THALAMIC INFARCTION [None]
  - BASAL GANGLIA INFARCTION [None]
  - ACUTE RESPIRATORY FAILURE [None]
  - SEPSIS [None]
  - LACUNAR INFARCTION [None]
  - CEREBRAL ISCHAEMIA [None]
